FAERS Safety Report 20781845 (Version 1)
Quarter: 2022Q2

REPORT INFORMATION
  Report Type: Spontaneous
  Country: US (occurrence: US)
  Receive Date: 20220504
  Receipt Date: 20220504
  Transmission Date: 20220721
  Serious: Yes (Death, Other)
  Sender: FDA-Public Use
  Company Number: US-BoehringerIngelheim-2022-BI-168485

PATIENT
  Age: 68 Year
  Sex: Male

DRUGS (1)
  1. SYNJARDY XR [Suspect]
     Active Substance: EMPAGLIFLOZIN\METFORMIN HYDROCHLORIDE
     Indication: Type 2 diabetes mellitus
     Dosage: 5/1000
     Route: 048
     Dates: start: 2021, end: 202204

REACTIONS (3)
  - Oesophageal rupture [Fatal]
  - Oesophageal haemorrhage [Fatal]
  - Choking [Unknown]

NARRATIVE: CASE EVENT DATE: 20220401
